FAERS Safety Report 19973672 (Version 1)
Quarter: 2021Q4

REPORT INFORMATION
  Report Type: Spontaneous
  Country: US (occurrence: US)
  Receive Date: 20211020
  Receipt Date: 20211020
  Transmission Date: 20220303
  Serious: No
  Sender: FDA-Public Use
  Company Number: US-ALVOGEN-2021-ALVOGEN-117643

PATIENT
  Sex: Female

DRUGS (3)
  1. TERIPARATIDE [Suspect]
     Active Substance: TERIPARATIDE
     Indication: Product used for unknown indication
  2. ABALOPARATIDE [Suspect]
     Active Substance: ABALOPARATIDE
     Indication: Osteoporosis
  3. TRAMADOL [Concomitant]
     Active Substance: TRAMADOL
     Indication: Product used for unknown indication

REACTIONS (1)
  - Arthralgia [Recovered/Resolved]
